FAERS Safety Report 6579083-9 (Version None)
Quarter: 2010Q1

REPORT INFORMATION
  Report Type: 
  Country: None (occurrence: None)
  Receive Date: 20100212
  Receipt Date: 20100201
  Transmission Date: 20100710
  Serious: Yes (Other)
  Sender: FDA-Public Use
  Company Number: US-JNJFOC-20090606420

PATIENT
  Sex: Female

DRUGS (3)
  1. REMICADE [Suspect]
     Indication: PSORIATIC ARTHROPATHY
     Route: 042
  2. DECADRON [Concomitant]
     Indication: PREMEDICATION
  3. BENADRYL [Concomitant]
     Indication: PREMEDICATION

REACTIONS (7)
  - APNOEA [None]
  - CHEST PAIN [None]
  - HEADACHE [None]
  - INFUSION RELATED REACTION [None]
  - PRURITUS [None]
  - SWELLING [None]
  - URTICARIA [None]
